FAERS Safety Report 7274190 (Version 5)
Quarter: 2016Q2

REPORT INFORMATION
  Report Type: Spontaneous
  Country: JP (occurrence: JP)
  Receive Date: 20100209
  Receipt Date: 20160428
  Transmission Date: 20160815
  Serious: Yes (Hospitalization)
  Sender: FDA-Public Use
  Company Number: JP-ROCHE-683954

PATIENT
  Age: 44 Year
  Sex: Female

DRUGS (6)
  1. DEPAKENE [Concomitant]
     Active Substance: VALPROIC ACID
     Route: 048
  2. XELODA [Suspect]
     Active Substance: CAPECITABINE
     Indication: COLON CANCER
     Route: 048
     Dates: start: 20090930, end: 20091013
  3. XELODA [Interacting]
     Active Substance: CAPECITABINE
     Route: 048
     Dates: start: 20091021, end: 20091103
  4. ALEVIATIN [Interacting]
     Active Substance: PHENYTOIN SODIUM
     Indication: COLON CANCER
     Dosage: DIVIDED INTO 2 DOSES
     Route: 048
  5. DEPAKENE [Concomitant]
     Active Substance: VALPROIC ACID
     Route: 048
  6. ALMARL [Concomitant]
     Active Substance: AROTINOLOL HYDROCHLORIDE
     Route: 048

REACTIONS (3)
  - Toxicity to various agents [Unknown]
  - Drug level increased [Unknown]
  - Drug interaction [Unknown]

NARRATIVE: CASE EVENT DATE: 200910
